FAERS Safety Report 8165806-4 (Version None)
Quarter: 2012Q1

REPORT INFORMATION
  Report Type: 
  Country: None (occurrence: None)
  Receive Date: 20120223
  Receipt Date: 20120223
  Transmission Date: 20120608
  Serious: No
  Sender: FDA-Public Use
  Company Number: None

PATIENT
  Age: 70 Year
  Sex: Female
  Weight: 78.0187 kg

DRUGS (1)
  1. FLOMAX [Suspect]
     Indication: NEPHROLITHIASIS
     Dosage: .4 MG ONCE A DAY ORAL
     Route: 048
     Dates: start: 20111008, end: 20111013

REACTIONS (5)
  - UNEVALUABLE EVENT [None]
  - PROCEDURAL COMPLICATION [None]
  - MUSCLE DISORDER [None]
  - DRUG INEFFECTIVE [None]
  - FLOPPY IRIS SYNDROME [None]
